FAERS Safety Report 7933896-7 (Version None)
Quarter: 2011Q4

REPORT INFORMATION
  Report Type: 
  Country: None (occurrence: None)
  Receive Date: 20111122
  Receipt Date: 20111107
  Transmission Date: 20120403
  Serious: Yes (Life-Threatening, Hospitalization, Other)
  Sender: FDA-Public Use
  Company Number: US-ROCHE-1012613

PATIENT
  Sex: Female

DRUGS (7)
  1. MORPHINE SULFATE [Suspect]
     Indication: PRODUCT USED FOR UNKNOWN INDICATION
  2. CYCLOPHOSPHAMIDE [Suspect]
     Indication: BREAST CANCER
     Dosage: OVER 30 MIN ON DAY 1, FOR 4 CYCLES
     Route: 042
     Dates: start: 20010608
  3. PACLITAXEL [Suspect]
     Indication: BREAST CANCER
     Dosage: OVER 1 HR ON DAY 1, FOR 12 WEEKS STARTING ON WEEK 13.
     Route: 042
  4. TAMOXIFEN CITRATE [Suspect]
     Indication: BREAST CANCER
     Dosage: TO BE INITIATED IN PATIENTS WITH ER + OR  PR + TUMORS AT THE TIME OF INITIATION OF RADIATION OR 5 WE
     Route: 048
  5. HERCEPTIN [Suspect]
     Dosage: OVER 30 MIN ON DAY 1, FOR 52 WEEKS STARTING ON WEEK 13
  6. DOXORUBICIN HCL [Suspect]
     Indication: BREAST CANCER
     Dosage: ON DAY 1 FOR 4 CYCLES
     Route: 042
     Dates: start: 20010608
  7. HERCEPTIN [Suspect]
     Indication: BREAST CANCER
     Dosage: LOADING DOSE OVER 90 MIN AS THE FIRST DOSE
     Route: 042
     Dates: start: 20010608

REACTIONS (3)
  - APNOEA [None]
  - PLEURAL EFFUSION [None]
  - PERICARDIAL EFFUSION [None]
